FAERS Safety Report 12567153 (Version 1)
Quarter: 2016Q3

REPORT INFORMATION
  Report Type: Report from Study
  Country: FR (occurrence: FR)
  Receive Date: 20160718
  Receipt Date: 20160718
  Transmission Date: 20161109
  Serious: Yes (Hospitalization, Other)
  Sender: FDA-Public Use
  Company Number: FR-REGENERON PHARMACEUTICALS, INC.-2016-19262

PATIENT

DRUGS (17)
  1. NEOSYNEPHRINE [Concomitant]
     Active Substance: PHENYLEPHRINE HYDROCHLORIDE
     Indication: PRODUCT USED FOR UNKNOWN INDICATION
     Dosage: UNK
     Dates: start: 20140821, end: 20140821
  2. EYLEA [Suspect]
     Active Substance: AFLIBERCEPT
     Dosage: 2 UNK,  LEFT EYE, VISIT 8
     Route: 031
     Dates: start: 20150409
  3. TOBRAMYCIN. [Concomitant]
     Active Substance: TOBRAMYCIN
     Dosage: 2 GTT, UNK
     Dates: start: 20150410, end: 20150412
  4. IOPIDINE                           /00948501/ [Concomitant]
     Indication: PRODUCT USED FOR UNKNOWN INDICATION
     Dosage: UNK
     Dates: start: 20140821, end: 20140821
  5. EYLEA [Suspect]
     Active Substance: AFLIBERCEPT
     Dosage: 2 UNK, LEFT EYE, VISIT 4
     Route: 031
     Dates: start: 20141018
  6. EYLEA [Suspect]
     Active Substance: AFLIBERCEPT
     Dosage: 2 UNK, LEFT EYE, VISIT 6
     Route: 031
     Dates: start: 20141213
  7. EYLEA [Suspect]
     Active Substance: AFLIBERCEPT
     Dosage: 2 UNK, LEFT EYE, VISIT 9
     Route: 031
     Dates: start: 20150608
  8. TOBRAMYCIN. [Concomitant]
     Active Substance: TOBRAMYCIN
     Dosage: 2 GTT, UNK
     Dates: start: 20141214, end: 20141216
  9. INDOCOLLYRE [Concomitant]
     Active Substance: INDOMETHACIN
     Indication: PRODUCT USED FOR UNKNOWN INDICATION
     Dosage: 3 GTT, UNK
     Dates: start: 20140821, end: 20140829
  10. TOBRAMYCIN. [Concomitant]
     Active Substance: TOBRAMYCIN
     Dosage: 2 GTT, UNK
     Dates: start: 20150210, end: 20150212
  11. EYLEA [Suspect]
     Active Substance: AFLIBERCEPT
     Indication: NEOVASCULAR AGE-RELATED MACULAR DEGENERATION
     Dosage: 2 MG MILLIGRAM(S), LEFT EYE, INITIAL VISIT
     Route: 031
     Dates: start: 20140616
  12. EYLEA [Suspect]
     Active Substance: AFLIBERCEPT
     Dosage: 2 UNK,  LEFT EYE, VISIT 2
     Route: 031
     Dates: start: 20140823
  13. OXYBUPROCAINE [Concomitant]
     Active Substance: BENOXINATE
     Indication: ANAESTHESIA
     Dosage: UNK
     Dates: start: 20150209
  14. MYDRIATICUM [Concomitant]
     Active Substance: TROPICAMIDE
     Indication: PRODUCT USED FOR UNKNOWN INDICATION
     Dosage: UNK
     Dates: start: 20140821, end: 20140821
  15. EYLEA [Suspect]
     Active Substance: AFLIBERCEPT
     Dosage: 2 UNK, LEFT EYE, VISIT 1
     Route: 031
     Dates: start: 20140719
  16. TOBRAMYCIN. [Concomitant]
     Active Substance: TOBRAMYCIN
     Indication: PROPHYLAXIS
     Dosage: 2 GTT, UNK
     Dates: start: 20141019, end: 20141021
  17. TOBRAMYCIN. [Concomitant]
     Active Substance: TOBRAMYCIN
     Dosage: 2 GTT, UNK
     Dates: start: 20150609, end: 20150611

REACTIONS (2)
  - General anaesthesia [Recovered/Resolved with Sequelae]
  - Fatigue [Unknown]

NARRATIVE: CASE EVENT DATE: 20160620
